FAERS Safety Report 18738126 (Version 1)
Quarter: 2021Q1

REPORT INFORMATION
  Report Type: Other
  Country: CN (occurrence: CN)
  Receive Date: 20210114
  Receipt Date: 20210114
  Transmission Date: 20210419
  Serious: Yes (Other)
  Sender: FDA-Public Use
  Company Number: CN-ROCHE-2744947

PATIENT

DRUGS (4)
  1. BEVACIZUMAB. [Suspect]
     Active Substance: BEVACIZUMAB
     Indication: COLORECTAL CANCER
     Dosage: REPEAT THE MEDICATION EVERY TWO WEEKS
     Route: 042
  2. FLUOROURACIL. [Suspect]
     Active Substance: FLUOROURACIL
     Indication: COLORECTAL CANCER
     Dosage: DAY 1?2,REPEAT THE MEDICATION EVERY TWO WEEKS
     Route: 041
  3. IRINOTECAN [Suspect]
     Active Substance: IRINOTECAN
     Indication: COLORECTAL CANCER
     Dosage: REPEAT THE MEDICATION EVERY TWO WEEKS
     Route: 041
  4. CALCIUM FOLINATE [Suspect]
     Active Substance: LEUCOVORIN CALCIUM
     Indication: COLORECTAL CANCER
     Dosage: DAY 1?2, REPEAT THE MEDICATION EVERY TWO WEEKS
     Route: 041

REACTIONS (8)
  - Vomiting [Unknown]
  - Renal injury [Unknown]
  - Leukopenia [Unknown]
  - Nausea [Unknown]
  - Liver injury [Unknown]
  - Dizziness [Unknown]
  - Thrombocytopenia [Unknown]
  - Neurological infection [Unknown]
